FAERS Safety Report 8599595-6 (Version None)
Quarter: 2012Q3

REPORT INFORMATION
  Report Type: 
  Country: None (occurrence: None)
  Receive Date: 20120802
  Receipt Date: 20120705
  Transmission Date: 20120928
  Serious: Yes (Other)
  Sender: FDA-Public Use
  Company Number: EUS-2012-00563

PATIENT
  Age: 58 Year
  Sex: Male
  Weight: 77 kg

DRUGS (8)
  1. VINCRISTINE [Suspect]
     Indication: CHEMOTHERAPY
     Dates: start: 20120312
  2. METRONIDAZOLE [Concomitant]
  3. CIPROFLOXACIN [Concomitant]
  4. CYCLOPHOSPHAMIDE [Suspect]
     Indication: CHEMOTHERAPY
     Dates: start: 20120312
  5. DOXORUBICIN HCL [Suspect]
     Indication: CHEMOTHERAPY
     Dates: start: 20120312
  6. ASPARAGINASE (UNSPECIFIED) (ASPARGINASE) (UNKNOWN) [Suspect]
     Indication: CHEMOTHERAPY
     Dates: start: 20120312
  7. DEXAMETHASONE [Suspect]
     Indication: CHEMOTHERAPY
     Dates: start: 20120312
  8. ISAVUCONAZOLE (ISAVUCONAZOLE) [Suspect]
     Indication: FUNGAL INFECTION
     Dosage: THREE TIMES DAILY, INTRAVENOUS (NOT OTHERWISE SPECIFIED)
     Route: 042
     Dates: start: 20120207, end: 20120209

REACTIONS (4)
  - PLATELET COUNT DECREASED [None]
  - HAEMOGLOBIN DECREASED [None]
  - WHITE BLOOD CELL COUNT DECREASED [None]
  - NEUTROPENIA [None]
